FAERS Safety Report 24329536 (Version 4)
Quarter: 2024Q3

REPORT INFORMATION
  Report Type: Spontaneous
  Country: ES (occurrence: ES)
  Receive Date: 20240917
  Receipt Date: 20240925
  Transmission Date: 20241017
  Serious: Yes (Other)
  Sender: MERCK
  Company Number: ES-009507513-2409ESP004473

PATIENT
  Age: 72 Year
  Sex: Male

DRUGS (1)
  1. BCG LIVE [Suspect]
     Active Substance: BACILLUS CALMETTE-GUERIN SUBSTRAIN TICE LIVE ANTIGEN
     Indication: Bladder cancer
     Route: 043

REACTIONS (3)
  - Aortic pseudoaneurysm [Recovered/Resolved]
  - Extrapulmonary tuberculosis [Recovered/Resolved]
  - Pulmonary tuberculosis [Recovered/Resolved]
